FAERS Safety Report 5332625-3 (Version None)
Quarter: 2007Q2

REPORT INFORMATION
  Report Type: 
  Country: None (occurrence: None)
  Receive Date: 20070523
  Receipt Date: 20070515
  Transmission Date: 20071010
  Serious: Yes (Hospitalization, Other)
  Sender: FDA-Public Use
  Company Number: US-PFIZER INC-2006001341

PATIENT
  Sex: Female
  Weight: 95.3 kg

DRUGS (1)
  1. BEXTRA [Suspect]
     Indication: NECK PAIN
     Route: 048

REACTIONS (6)
  - ANKLE FRACTURE [None]
  - ANKLE OPERATION [None]
  - CEREBROVASCULAR ACCIDENT [None]
  - FALL [None]
  - HEADACHE [None]
  - TRANSIENT ISCHAEMIC ATTACK [None]
